FAERS Safety Report 9472483 (Version 2)
Quarter: 2013Q3

REPORT INFORMATION
  Report Type: Report from Study
  Country: BR (occurrence: BR)
  Receive Date: 20130823
  Receipt Date: 20130920
  Transmission Date: 20140515
  Serious: Yes (Other)
  Sender: FDA-Public Use
  Company Number: PHHY2013BR091152

PATIENT
  Sex: Male
  Weight: 108 kg

DRUGS (3)
  1. DIOVAN HCT [Suspect]
     Indication: HYPERTENSION
     Dosage: 1 DF(160/12.5MG), A DAY
     Route: 048
  2. ONBREZ [Suspect]
     Indication: LUNG DISORDER
     Dosage: 1 DF, A DAY
  3. ALGIMAX [Concomitant]
     Indication: LUNG DISORDER
     Dosage: 1 DF(INHALATION), A DAY

REACTIONS (5)
  - Tibia fracture [Recovering/Resolving]
  - Fibula fracture [Recovering/Resolving]
  - Type 2 diabetes mellitus [Not Recovered/Not Resolved]
  - Stress [Unknown]
  - Insomnia [Unknown]
